FAERS Safety Report 26018562 (Version 1)
Quarter: 2025Q4

REPORT INFORMATION
  Report Type: Spontaneous
  Country: IN (occurrence: IN)
  Receive Date: 20251110
  Receipt Date: 20251110
  Transmission Date: 20260119
  Serious: Yes (Life-Threatening, Hospitalization, Other)
  Sender: SOMERSET THERAPEUTICS, LLC
  Company Number: IN-MIT-25-75-IN-2025-SOM-LIT-00085

PATIENT
  Age: 36 Year
  Sex: Male
  Weight: 75 kg

DRUGS (11)
  1. LACOSAMIDE [Suspect]
     Active Substance: LACOSAMIDE
     Indication: Epilepsy
     Route: 065
  2. LEVETIRACETAM [Concomitant]
     Active Substance: LEVETIRACETAM
     Route: 065
  3. VALPROATE SODIUM [Concomitant]
     Active Substance: VALPROATE SODIUM
     Route: 065
  4. OXCARBAZEPINE [Concomitant]
     Active Substance: OXCARBAZEPINE
     Route: 065
  5. FLUOXETINE [Concomitant]
     Active Substance: FLUOXETINE HYDROCHLORIDE
     Route: 065
  6. CLOBAZAM [Concomitant]
     Active Substance: CLOBAZAM
     Route: 065
  7. FENTANYL [Concomitant]
     Active Substance: FENTANYL
     Indication: Anaesthesia
     Dosage: 2 MCG/KG
     Route: 065
  8. FENTANYL [Concomitant]
     Active Substance: FENTANYL
     Dosage: 50 MCG
     Route: 065
  9. PROPOFOL [Concomitant]
     Active Substance: PROPOFOL
     Indication: Anaesthesia
     Route: 065
  10. ROCURONIUM [Concomitant]
     Active Substance: ROCURONIUM BROMIDE
     Indication: Anaesthesia
     Route: 065
  11. SEVOFLURANE [Concomitant]
     Active Substance: SEVOFLURANE
     Indication: Anaesthesia
     Dosage: 0.9 TO1.1 MAC
     Route: 065

REACTIONS (1)
  - Ictal bradycardia syndrome [Recovered/Resolved]
